FAERS Safety Report 25933002 (Version 1)
Quarter: 2025Q4

REPORT INFORMATION
  Report Type: Spontaneous
  Country: US (occurrence: US)
  Receive Date: 20251017
  Receipt Date: 20251017
  Transmission Date: 20260118
  Serious: No
  Sender: IPSEN BIOPHARMACEUTICALS, INC.
  Company Number: US-IPSEN Group, Research and Development-2025-25408

PATIENT
  Age: 68 Year
  Sex: Female

DRUGS (1)
  1. IQIRVO [Suspect]
     Active Substance: ELAFIBRANOR
     Indication: Primary biliary cholangitis
     Dosage: ONCE DAILY
     Route: 048

REACTIONS (9)
  - Back pain [Not Recovered/Not Resolved]
  - Arthralgia [Not Recovered/Not Resolved]
  - Pain in extremity [Not Recovered/Not Resolved]
  - Paraesthesia [Not Recovered/Not Resolved]
  - Gait disturbance [Not Recovered/Not Resolved]
  - Gait disturbance [Not Recovered/Not Resolved]
  - Urinary tract infection [Not Recovered/Not Resolved]
  - Fall [Not Recovered/Not Resolved]
  - Arthritis [Not Recovered/Not Resolved]

NARRATIVE: CASE EVENT DATE: 20250911
